FAERS Safety Report 17350671 (Version 1)
Quarter: 2020Q1

REPORT INFORMATION
  Report Type: Spontaneous
  Country: FR (occurrence: FR)
  Receive Date: 20200130
  Receipt Date: 20200130
  Transmission Date: 20200409
  Serious: Yes (Other)
  Sender: FDA-Public Use
  Company Number: FR-TEVA-2020-FR-1176632

PATIENT
  Age: 73 Year
  Sex: Male
  Weight: 80 kg

DRUGS (5)
  1. METHOTREXATE. [Suspect]
     Active Substance: METHOTREXATE
     Indication: PSORIASIS
     Dosage: 15 MILLIGRAM
     Route: 058
     Dates: start: 20150205, end: 20191007
  2. ACIDE FOLIQUE [Concomitant]
     Active Substance: FOLIC ACID
  3. BETNEVAL [Concomitant]
     Active Substance: BETAMETHASONE VALERATE
  4. LEVOTHYROX [Concomitant]
     Active Substance: LEVOTHYROXINE
     Route: 048
  5. MOPRAL 20 MG, COMPRIM? GASTRO-R?SISTANT [Concomitant]
     Active Substance: OMEPRAZOLE
     Route: 048

REACTIONS (3)
  - Portal hypertension [Not Recovered/Not Resolved]
  - Splenomegaly [Not Recovered/Not Resolved]
  - Hepatic steatosis [Not Recovered/Not Resolved]

NARRATIVE: CASE EVENT DATE: 20190515
